FAERS Safety Report 6373342-0 (Version None)
Quarter: 2009Q3

REPORT INFORMATION
  Report Type: 
  Country: None (occurrence: None)
  Receive Date: 20090924
  Receipt Date: 20090401
  Transmission Date: 20100115
  Serious: No
  Sender: FDA-Public Use
  Company Number: US-ASTRAZENECA-2009UW08201

PATIENT
  Age: 83 Year
  Sex: Female

DRUGS (1)
  1. SEROQUEL [Suspect]
     Indication: AGITATION
     Route: 048

REACTIONS (1)
  - OFF LABEL USE [None]
